FAERS Safety Report 4596986-5 (Version None)
Quarter: 2005Q1

REPORT INFORMATION
  Report Type: 
  Country: None (occurrence: None)
  Receive Date: 20050228
  Receipt Date: 20041122
  Transmission Date: 20050727
  Serious: Yes (Hospitalization, Other)
  Sender: FDA-Public Use
  Company Number: 2004241520US

PATIENT
  Age: 68 Year
  Sex: Female
  Weight: 83.9154 kg

DRUGS (4)
  1. CELEBREX [Suspect]
     Indication: OSTEOPOROSIS
     Dosage: (200 MG, 1 IN 1 D), ORAL
     Route: 048
     Dates: start: 19990223, end: 20020619
  2. ESTROPIPATE [Concomitant]
  3. ALDACTAZIDE A (HYDROCHLOROTHIAZIDE, SPIRONOLACTONE) [Concomitant]
  4. CALCIUM WITH VITAMIN D (CALCIUM PHOSPHATE, CALCIUM SODIUM LACTATE, ERG [Concomitant]

REACTIONS (2)
  - GASTRIC HAEMORRHAGE [None]
  - HAEMATEMESIS [None]
